FAERS Safety Report 8924465 (Version 1)
Quarter: 2012Q4

REPORT INFORMATION
  Report Type: 
  Country: FR (occurrence: FR)
  Receive Date: 20121126
  Receipt Date: 20121126
  Transmission Date: 20130627
  Serious: Yes (Other)
  Sender: FDA-Public Use
  Company Number: FR-PFIZER INC-2012291945

PATIENT
  Age: 78 Year
  Sex: Male

DRUGS (4)
  1. TAHOR [Suspect]
     Indication: HYPERCHOLESTEROLEMIA
     Dosage: UNK
     Route: 048
     Dates: end: 201204
  2. APROVEL [Suspect]
     Indication: HYPERTENSION ARTERIAL
     Dosage: UNK
     Route: 048
  3. AVODART [Suspect]
     Indication: BENIGN PROSTATIC HYPERPLASIA
     Dosage: 0.5 mg, UNK
     Route: 048
  4. OMEXEL [Suspect]
     Indication: BENIGN PROSTATIC HYPERPLASIA
     Dosage: 0.4 mg, UNK
     Route: 048
     Dates: end: 201204

REACTIONS (11)
  - Hepatitis [Recovering/Resolving]
  - Jaundice [Recovered/Resolved]
  - Rash maculo-papular [None]
  - Rash erythematous [None]
  - Hepatitis cholestatic [None]
  - Granulocytosis [None]
  - Inflammation [None]
  - Hepatic steatosis [None]
  - Autoimmune hepatitis [None]
  - Hepatic fibrosis [None]
  - Salivary gland disorder [None]
